FAERS Safety Report 6613803-X (Version None)
Quarter: 2010Q1

REPORT INFORMATION
  Report Type: 
  Country: None (occurrence: None)
  Receive Date: 20100304
  Receipt Date: 20100223
  Transmission Date: 20100710
  Serious: Yes (Hospitalization, Other)
  Sender: FDA-Public Use
  Company Number: US-BAXTER-2010BH002569

PATIENT
  Age: 58 Year
  Sex: Male
  Weight: 62 kg

DRUGS (162)
  1. HEPARIN SODIUM INJECTION [Suspect]
     Indication: CORONARY ARTERY BYPASS
     Route: 042
     Dates: start: 20071123, end: 20071123
  2. HEPARIN SODIUM INJECTION [Suspect]
     Indication: CARDIAC ANEURYSM REPAIR
     Route: 042
     Dates: start: 20071123, end: 20071123
  3. HEPARIN SODIUM INJECTION [Suspect]
     Indication: MEDIASTINAL OPERATION
     Route: 042
     Dates: start: 20071123, end: 20071123
  4. HEPARIN SODIUM INJECTION [Suspect]
     Indication: CARDIAC PACEMAKER INSERTION
     Route: 042
     Dates: start: 20071123, end: 20071123
  5. HEPARIN SODIUM INJECTION [Suspect]
     Indication: ANGIOGRAM PERIPHERAL
     Route: 042
     Dates: start: 20071123, end: 20071123
  6. HEPARIN SODIUM INJECTION [Suspect]
     Indication: ARTERIOGRAM CORONARY
     Route: 042
     Dates: start: 20071123, end: 20071123
  7. HEPARIN SODIUM INJECTION [Suspect]
     Indication: CATHETERISATION CARDIAC
     Route: 042
     Dates: start: 20071123, end: 20071123
  8. HEPARIN SODIUM INJECTION [Suspect]
     Route: 042
     Dates: start: 20071123, end: 20071123
  9. HEPARIN SODIUM INJECTION [Suspect]
     Indication: INTRA-AORTIC BALLOON PLACEMENT
     Route: 042
     Dates: start: 20071123, end: 20071123
  10. HEPARIN SODIUM INJECTION [Suspect]
     Indication: CORONARY ANGIOPLASTY
     Route: 042
     Dates: start: 20071123, end: 20071123
  11. HEPARIN SODIUM INJECTION [Suspect]
     Route: 042
     Dates: start: 20071126, end: 20071126
  12. HEPARIN SODIUM INJECTION [Suspect]
     Route: 042
     Dates: start: 20071126, end: 20071126
  13. HEPARIN SODIUM INJECTION [Suspect]
     Route: 042
     Dates: start: 20071126, end: 20071126
  14. HEPARIN SODIUM INJECTION [Suspect]
     Route: 042
     Dates: start: 20071126, end: 20071126
  15. HEPARIN SODIUM INJECTION [Suspect]
     Route: 042
     Dates: start: 20071126, end: 20071126
  16. HEPARIN SODIUM INJECTION [Suspect]
     Route: 042
     Dates: start: 20071126, end: 20071126
  17. HEPARIN SODIUM INJECTION [Suspect]
     Route: 042
     Dates: start: 20071126, end: 20071126
  18. HEPARIN SODIUM INJECTION [Suspect]
     Route: 042
     Dates: start: 20071126, end: 20071126
  19. HEPARIN SODIUM INJECTION [Suspect]
     Route: 042
     Dates: start: 20071126, end: 20071126
  20. HEPARIN SODIUM INJECTION [Suspect]
     Route: 042
     Dates: start: 20071126, end: 20071126
  21. HEPARIN SODIUM INJECTION [Suspect]
     Route: 042
     Dates: start: 20080110, end: 20080110
  22. HEPARIN SODIUM INJECTION [Suspect]
     Route: 042
     Dates: start: 20080110, end: 20080110
  23. HEPARIN SODIUM INJECTION [Suspect]
     Route: 042
     Dates: start: 20080110, end: 20080110
  24. HEPARIN SODIUM INJECTION [Suspect]
     Route: 042
     Dates: start: 20080110, end: 20080110
  25. HEPARIN SODIUM INJECTION [Suspect]
     Route: 042
     Dates: start: 20080110, end: 20080110
  26. HEPARIN SODIUM INJECTION [Suspect]
     Route: 042
     Dates: start: 20080110, end: 20080110
  27. HEPARIN SODIUM INJECTION [Suspect]
     Route: 042
     Dates: start: 20080110, end: 20080110
  28. HEPARIN SODIUM INJECTION [Suspect]
     Route: 042
     Dates: start: 20080110, end: 20080110
  29. HEPARIN SODIUM INJECTION [Suspect]
     Route: 042
     Dates: start: 20080110, end: 20080110
  30. HEPARIN SODIUM INJECTION [Suspect]
     Route: 042
     Dates: start: 20080110, end: 20080110
  31. HEPARIN SODIUM INJECTION [Suspect]
     Route: 042
     Dates: start: 20080122, end: 20080122
  32. HEPARIN SODIUM INJECTION [Suspect]
     Route: 042
     Dates: start: 20080122, end: 20080122
  33. HEPARIN SODIUM INJECTION [Suspect]
     Route: 042
     Dates: start: 20080122, end: 20080122
  34. HEPARIN SODIUM INJECTION [Suspect]
     Route: 042
     Dates: start: 20080122, end: 20080122
  35. HEPARIN SODIUM INJECTION [Suspect]
     Route: 042
     Dates: start: 20080122, end: 20080122
  36. HEPARIN SODIUM INJECTION [Suspect]
     Route: 042
     Dates: start: 20080122, end: 20080122
  37. HEPARIN SODIUM INJECTION [Suspect]
     Route: 042
     Dates: start: 20080122, end: 20080122
  38. HEPARIN SODIUM INJECTION [Suspect]
     Route: 042
     Dates: start: 20080122, end: 20080122
  39. HEPARIN SODIUM INJECTION [Suspect]
     Route: 042
     Dates: start: 20080122, end: 20080122
  40. HEPARIN SODIUM INJECTION [Suspect]
     Route: 042
     Dates: start: 20080122, end: 20080122
  41. HEPARIN SODIUM INJECTION [Suspect]
     Route: 042
     Dates: start: 20080130, end: 20080130
  42. HEPARIN SODIUM INJECTION [Suspect]
     Route: 042
     Dates: start: 20080130, end: 20080130
  43. HEPARIN SODIUM INJECTION [Suspect]
     Route: 042
     Dates: start: 20080130, end: 20080130
  44. HEPARIN SODIUM INJECTION [Suspect]
     Route: 042
     Dates: start: 20080130, end: 20080130
  45. HEPARIN SODIUM INJECTION [Suspect]
     Route: 042
     Dates: start: 20080130, end: 20080130
  46. HEPARIN SODIUM INJECTION [Suspect]
     Route: 042
     Dates: start: 20080130, end: 20080130
  47. HEPARIN SODIUM INJECTION [Suspect]
     Route: 042
     Dates: start: 20080130, end: 20080130
  48. HEPARIN SODIUM INJECTION [Suspect]
     Route: 042
     Dates: start: 20080130, end: 20080130
  49. HEPARIN SODIUM INJECTION [Suspect]
     Route: 042
     Dates: start: 20080130, end: 20080130
  50. HEPARIN SODIUM INJECTION [Suspect]
     Route: 042
     Dates: start: 20080130, end: 20080130
  51. HEPARIN SODIUM INJECTION [Suspect]
     Route: 042
     Dates: start: 20080208, end: 20080208
  52. HEPARIN SODIUM INJECTION [Suspect]
     Route: 042
     Dates: start: 20080208, end: 20080208
  53. HEPARIN SODIUM INJECTION [Suspect]
     Route: 042
     Dates: start: 20080208, end: 20080208
  54. HEPARIN SODIUM INJECTION [Suspect]
     Route: 042
     Dates: start: 20080208, end: 20080208
  55. HEPARIN SODIUM INJECTION [Suspect]
     Route: 042
     Dates: start: 20080208, end: 20080208
  56. HEPARIN SODIUM INJECTION [Suspect]
     Route: 042
     Dates: start: 20080208, end: 20080208
  57. HEPARIN SODIUM INJECTION [Suspect]
     Route: 042
     Dates: start: 20080208, end: 20080208
  58. HEPARIN SODIUM INJECTION [Suspect]
     Route: 042
     Dates: start: 20080208, end: 20080208
  59. HEPARIN SODIUM INJECTION [Suspect]
     Route: 042
     Dates: start: 20080208, end: 20080208
  60. HEPARIN SODIUM INJECTION [Suspect]
     Route: 042
     Dates: start: 20080208, end: 20080208
  61. ASPIRIN [Concomitant]
     Indication: DRUG USE FOR UNKNOWN INDICATION
     Route: 065
  62. CANDESARTAN [Concomitant]
     Indication: DRUG USE FOR UNKNOWN INDICATION
     Route: 065
  63. METOPROLOL TARTRATE [Concomitant]
     Indication: DRUG USE FOR UNKNOWN INDICATION
     Route: 065
  64. ACETAMINOPHEN AND HYDROCODONE BITARTRATE [Concomitant]
     Indication: DRUG USE FOR UNKNOWN INDICATION
     Route: 065
  65. GLUCAGON [Concomitant]
     Indication: DRUG USE FOR UNKNOWN INDICATION
     Route: 065
  66. INSULIN [Concomitant]
     Indication: DRUG USE FOR UNKNOWN INDICATION
     Route: 065
  67. NITROGLYCERIN [Concomitant]
     Indication: DRUG USE FOR UNKNOWN INDICATION
     Route: 065
  68. COREG [Concomitant]
     Indication: DRUG USE FOR UNKNOWN INDICATION
  69. METFORMIN HYDROCHLORIDE [Concomitant]
     Indication: DRUG USE FOR UNKNOWN INDICATION
     Route: 065
  70. CARDIZEM [Concomitant]
     Indication: DRUG USE FOR UNKNOWN INDICATION
     Route: 065
  71. TOPROL-XL [Concomitant]
     Indication: DRUG USE FOR UNKNOWN INDICATION
     Route: 065
  72. BENICAR [Concomitant]
     Indication: DRUG USE FOR UNKNOWN INDICATION
     Route: 065
  73. ATROPINE SULFATE [Concomitant]
     Indication: DRUG USE FOR UNKNOWN INDICATION
     Route: 065
     Dates: start: 20071101, end: 20071201
  74. VANCOMYCIN HYDROCHLORIDE [Concomitant]
     Indication: SURGERY
     Route: 065
     Dates: start: 20071101, end: 20071201
  75. CANDESARTAN CILEXETIL [Concomitant]
     Indication: DRUG USE FOR UNKNOWN INDICATION
     Route: 065
     Dates: start: 20071101, end: 20071201
  76. ISOSORBIDE MONONITRATE [Concomitant]
     Indication: DRUG USE FOR UNKNOWN INDICATION
     Route: 065
     Dates: start: 20071101, end: 20071201
  77. METOPROLOL TARTRATE [Concomitant]
     Route: 065
     Dates: start: 20071101, end: 20071201
  78. THROMBOGEN [Concomitant]
     Indication: DRUG USE FOR UNKNOWN INDICATION
     Route: 061
     Dates: start: 20071101, end: 20071201
  79. CALCIUM CHLORIDE ^BIOTIKA^ [Concomitant]
     Indication: DRUG USE FOR UNKNOWN INDICATION
     Route: 065
     Dates: start: 20071101, end: 20071201
  80. AMICAR [Concomitant]
     Indication: DRUG USE FOR UNKNOWN INDICATION
     Route: 065
     Dates: start: 20071101, end: 20071201
  81. AMIODARONE HCL [Concomitant]
     Indication: DRUG USE FOR UNKNOWN INDICATION
     Route: 065
     Dates: start: 20071101, end: 20071201
  82. EPHEDRINE SUL CAP [Concomitant]
     Indication: DRUG USE FOR UNKNOWN INDICATION
     Route: 065
     Dates: start: 20071101, end: 20071201
  83. EPINEPHRINE [Concomitant]
     Indication: DRUG USE FOR UNKNOWN INDICATION
     Route: 065
     Dates: start: 20071101, end: 20071201
  84. ETOMIDATE [Concomitant]
     Indication: DRUG USE FOR UNKNOWN INDICATION
     Route: 065
     Dates: start: 20071101, end: 20071201
  85. MANNITOL [Concomitant]
     Indication: DRUG USE FOR UNKNOWN INDICATION
     Route: 065
     Dates: start: 20071101, end: 20071201
  86. PANCURONIUM BROMIDE [Concomitant]
     Indication: DRUG USE FOR UNKNOWN INDICATION
     Route: 065
     Dates: start: 20071101, end: 20071201
  87. PROTAMINE SULFATE [Concomitant]
     Indication: DRUG USE FOR UNKNOWN INDICATION
     Route: 065
     Dates: start: 20071101, end: 20071201
  88. XYLOCAINE [Concomitant]
     Indication: DRUG USE FOR UNKNOWN INDICATION
     Route: 065
     Dates: start: 20071101, end: 20071201
  89. PLEGISOL [Concomitant]
     Indication: DRUG USE FOR UNKNOWN INDICATION
     Route: 065
     Dates: start: 20071101, end: 20071201
  90. FENTANYL [Concomitant]
     Indication: DRUG USE FOR UNKNOWN INDICATION
     Route: 065
     Dates: start: 20071101, end: 20071201
  91. FORANE [Concomitant]
     Indication: ANAESTHESIA
     Route: 065
     Dates: start: 20071101, end: 20071201
  92. SODIUM CHLORIDE [Concomitant]
     Indication: DRUG USE FOR UNKNOWN INDICATION
     Route: 065
     Dates: start: 20071101, end: 20071201
  93. CARDIOPLEGIC [Concomitant]
     Indication: DRUG USE FOR UNKNOWN INDICATION
     Route: 065
     Dates: start: 20071101, end: 20071201
  94. SODIUM BICARBONATE [Concomitant]
     Indication: DRUG USE FOR UNKNOWN INDICATION
     Route: 065
     Dates: start: 20071101, end: 20071201
  95. PHENYLEPHRINE [Concomitant]
     Indication: DRUG USE FOR UNKNOWN INDICATION
     Route: 065
     Dates: start: 20071101, end: 20071201
  96. VASOPRESSIN INJECTION [Concomitant]
     Indication: DRUG USE FOR UNKNOWN INDICATION
     Route: 065
     Dates: start: 20071101, end: 20071201
  97. MORPHINE SULFATE [Concomitant]
     Indication: DRUG USE FOR UNKNOWN INDICATION
     Route: 065
     Dates: start: 20071101, end: 20071201
  98. CEFEPIME [Concomitant]
     Indication: DRUG USE FOR UNKNOWN INDICATION
     Route: 065
     Dates: start: 20071101, end: 20071201
  99. CHLORHEXIDINE GLUCONATE [Concomitant]
     Indication: DRUG USE FOR UNKNOWN INDICATION
     Route: 065
     Dates: start: 20071101, end: 20071201
  100. DIGOXIN [Concomitant]
     Indication: DRUG USE FOR UNKNOWN INDICATION
     Route: 065
     Dates: start: 20071101, end: 20071201
  101. HYDROCORTISONE SODIUM SUCCINATE [Concomitant]
     Indication: DRUG USE FOR UNKNOWN INDICATION
     Route: 042
     Dates: start: 20071101, end: 20071201
  102. PANTOPRAZOLE [Concomitant]
     Indication: DRUG USE FOR UNKNOWN INDICATION
     Route: 042
     Dates: start: 20071101, end: 20071201
  103. MILRINONE [Concomitant]
     Indication: DRUG USE FOR UNKNOWN INDICATION
     Route: 065
     Dates: start: 20071101, end: 20071201
  104. PRAVASTATIN [Concomitant]
     Indication: DRUG USE FOR UNKNOWN INDICATION
     Route: 065
     Dates: start: 20071101, end: 20071201
  105. ALTACE [Concomitant]
     Indication: DRUG USE FOR UNKNOWN INDICATION
     Route: 065
     Dates: start: 20071101, end: 20071201
  106. XANAX [Concomitant]
     Indication: DRUG USE FOR UNKNOWN INDICATION
     Route: 065
     Dates: start: 20071101, end: 20071201
  107. ZOFRAN [Concomitant]
     Indication: NAUSEA
     Route: 065
     Dates: start: 20071101, end: 20071201
  108. ATIVAN [Concomitant]
     Indication: DRUG USE FOR UNKNOWN INDICATION
     Route: 065
     Dates: start: 20071101, end: 20071201
  109. ALBUTEIN [Concomitant]
     Indication: DRUG USE FOR UNKNOWN INDICATION
     Route: 042
     Dates: start: 20071101, end: 20071201
  110. HYDROCORTISONE [Concomitant]
     Indication: DRUG USE FOR UNKNOWN INDICATION
     Route: 042
     Dates: start: 20071101, end: 20071201
  111. FLUCONAZOLE [Concomitant]
     Indication: DRUG USE FOR UNKNOWN INDICATION
     Route: 042
     Dates: start: 20071101, end: 20071201
  112. ERTAPENEM [Concomitant]
     Indication: DRUG USE FOR UNKNOWN INDICATION
     Route: 042
     Dates: start: 20071101, end: 20071201
  113. VERSED [Concomitant]
     Indication: DRUG USE FOR UNKNOWN INDICATION
     Route: 042
     Dates: start: 20071101, end: 20071201
  114. DOPAMINE HCL [Concomitant]
     Indication: BLOOD PRESSURE
     Route: 065
     Dates: start: 20071101, end: 20071201
  115. ASPIRIN [Concomitant]
     Indication: DRUG USE FOR UNKNOWN INDICATION
     Route: 065
     Dates: start: 20071101, end: 20071201
  116. SOLU-MEDROL [Concomitant]
     Indication: DRUG USE FOR UNKNOWN INDICATION
     Route: 065
     Dates: start: 20071101, end: 20071201
  117. COLACE [Concomitant]
     Indication: DRUG USE FOR UNKNOWN INDICATION
     Route: 065
     Dates: start: 20071101, end: 20071201
  118. ATROVENT [Concomitant]
     Indication: RESPIRATORY DISORDER
     Route: 065
     Dates: start: 20071101, end: 20071201
  119. ALBUTEROL [Concomitant]
     Indication: RESPIRATORY DISORDER
     Route: 065
     Dates: start: 20071101, end: 20071201
  120. LANTUS [Concomitant]
     Indication: DRUG USE FOR UNKNOWN INDICATION
     Route: 065
     Dates: start: 20071101, end: 20071201
  121. PIPERACILLIN [Concomitant]
     Indication: DRUG USE FOR UNKNOWN INDICATION
     Route: 065
     Dates: start: 20071101, end: 20071201
  122. DULCOLAX [Concomitant]
     Indication: DRUG USE FOR UNKNOWN INDICATION
     Route: 065
     Dates: start: 20071101, end: 20071201
  123. DEXTRAN 40 [Concomitant]
     Indication: DRUG USE FOR UNKNOWN INDICATION
     Route: 065
     Dates: start: 20071101, end: 20071201
  124. EPOPROSTENOL SODIUM [Concomitant]
     Indication: DRUG USE FOR UNKNOWN INDICATION
     Route: 065
     Dates: start: 20071101, end: 20071201
  125. POTASSIUM CHLORIDE [Concomitant]
     Indication: DRUG USE FOR UNKNOWN INDICATION
     Route: 042
     Dates: start: 20071101, end: 20071201
  126. FACTOR VIIA [Concomitant]
     Indication: DRUG USE FOR UNKNOWN INDICATION
     Route: 065
     Dates: start: 20071101, end: 20071201
  127. TOBRAMYCIN [Concomitant]
     Indication: DRUG USE FOR UNKNOWN INDICATION
     Route: 065
     Dates: start: 20071101, end: 20071201
  128. XANAX [Concomitant]
     Route: 065
     Dates: start: 20080110, end: 20080115
  129. NEURONTIN [Concomitant]
     Indication: DRUG USE FOR UNKNOWN INDICATION
     Route: 065
     Dates: start: 20080110, end: 20080115
  130. ACETAMINOPHEN W/ PROPOXYPHENE HCL [Concomitant]
     Indication: DRUG USE FOR UNKNOWN INDICATION
     Route: 065
     Dates: start: 20080110, end: 20080115
  131. FENTANYL [Concomitant]
     Route: 065
     Dates: start: 20080110, end: 20080115
  132. LASIX [Concomitant]
     Indication: DRUG USE FOR UNKNOWN INDICATION
     Route: 065
     Dates: start: 20080110, end: 20080115
  133. BENADRYL ^WARNER-LAMBERT^               /USA/ [Concomitant]
     Indication: DRUG USE FOR UNKNOWN INDICATION
     Route: 065
     Dates: start: 20080110, end: 20080115
  134. TYLENOL-500 [Concomitant]
     Indication: DRUG USE FOR UNKNOWN INDICATION
     Route: 065
     Dates: start: 20080110, end: 20080115
  135. CALCIUM MAGNESIUM ZINC [Concomitant]
     Indication: DRUG USE FOR UNKNOWN INDICATION
     Route: 065
     Dates: start: 20080110, end: 20080115
  136. PREGABALIN [Concomitant]
     Indication: DRUG USE FOR UNKNOWN INDICATION
     Route: 065
     Dates: start: 20080110, end: 20080115
  137. AMBIEN [Concomitant]
     Indication: DRUG USE FOR UNKNOWN INDICATION
     Route: 065
     Dates: start: 20080110, end: 20080115
  138. DIFLUCAN [Concomitant]
     Indication: DRUG USE FOR UNKNOWN INDICATION
     Route: 065
     Dates: start: 20080110, end: 20080115
  139. MIDAZOLAM HCL [Concomitant]
     Indication: SURGERY
     Route: 065
     Dates: start: 20080110, end: 20080115
  140. STARLIX [Concomitant]
     Indication: DRUG USE FOR UNKNOWN INDICATION
     Route: 065
     Dates: start: 20080110, end: 20080115
  141. ISOSORBIDE MONONITRATE [Concomitant]
     Route: 065
     Dates: start: 20080110, end: 20080115
  142. INSULIN [Concomitant]
     Route: 065
     Dates: start: 20080110, end: 20080115
  143. AMIODARONE HCL [Concomitant]
     Route: 065
     Dates: start: 20080130, end: 20080202
  144. K-DUR [Concomitant]
     Indication: DRUG USE FOR UNKNOWN INDICATION
     Route: 065
     Dates: start: 20080130, end: 20080202
  145. GASTROVIST [Concomitant]
     Indication: DRUG USE FOR UNKNOWN INDICATION
     Route: 065
     Dates: start: 20080130, end: 20080202
  146. METOCLOPRAMIDE HYDROCHLORIDE [Concomitant]
     Indication: DRUG USE FOR UNKNOWN INDICATION
     Route: 065
     Dates: start: 20080130, end: 20080202
  147. PANTOPRAZOLE [Concomitant]
     Route: 065
     Dates: start: 20080130, end: 20080202
  148. LEVAQUIN [Concomitant]
     Indication: DRUG USE FOR UNKNOWN INDICATION
     Route: 065
     Dates: start: 20080130, end: 20080202
  149. MAGNESIUM SULFATE [Concomitant]
     Indication: DRUG USE FOR UNKNOWN INDICATION
     Route: 065
     Dates: start: 20080130, end: 20080202
  150. AMIODARONE HCL [Concomitant]
     Route: 065
     Dates: start: 20080130, end: 20080202
  151. FENTANYL [Concomitant]
     Route: 065
     Dates: start: 20080130, end: 20080202
  152. MAGNESIUM OXIDE [Concomitant]
     Indication: DRUG USE FOR UNKNOWN INDICATION
     Route: 065
     Dates: start: 20080130, end: 20080202
  153. BUMETANIDE [Concomitant]
     Indication: DRUG USE FOR UNKNOWN INDICATION
     Route: 065
     Dates: start: 20080130, end: 20080202
  154. ACETAZOLAMIDE [Concomitant]
     Indication: DRUG USE FOR UNKNOWN INDICATION
     Route: 065
     Dates: start: 20080130, end: 20080202
  155. NOREPINEPHRINE [Concomitant]
     Indication: DRUG USE FOR UNKNOWN INDICATION
     Route: 065
     Dates: start: 20080130, end: 20080202
  156. VANCOMYCIN [Concomitant]
     Indication: DRUG USE FOR UNKNOWN INDICATION
     Route: 065
     Dates: start: 20080130, end: 20080202
  157. GUAIFENESIN [Concomitant]
     Indication: DRUG USE FOR UNKNOWN INDICATION
     Route: 065
     Dates: start: 20080130, end: 20080202
  158. POTASSIUM CHLORIDE [Concomitant]
     Route: 065
     Dates: start: 20080130, end: 20080202
  159. VYTORIN [Concomitant]
     Indication: DRUG USE FOR UNKNOWN INDICATION
     Route: 065
  160. MAGNESIUM SULFATE [Concomitant]
     Route: 065
  161. NAPROXEN [Concomitant]
     Indication: DRUG USE FOR UNKNOWN INDICATION
     Route: 065
  162. PAPAVERINE [Concomitant]
     Indication: DRUG USE FOR UNKNOWN INDICATION
     Route: 065

REACTIONS (23)
  - ACUTE RESPIRATORY FAILURE [None]
  - ANAEMIA [None]
  - ASTHENIA [None]
  - ATRIAL FIBRILLATION [None]
  - BACTERIAL INFECTION [None]
  - CARDIAC FAILURE CONGESTIVE [None]
  - CARDIOMEGALY [None]
  - CARDIORENAL SYNDROME [None]
  - CONFUSIONAL STATE [None]
  - DECUBITUS ULCER [None]
  - EPISTAXIS [None]
  - GANGRENE [None]
  - GASTRITIS EROSIVE [None]
  - HAEMATEMESIS [None]
  - HYPOTENSION [None]
  - MELAENA [None]
  - NEUROPATHY PERIPHERAL [None]
  - PERIPHERAL VASCULAR DISORDER [None]
  - PLEURAL EFFUSION [None]
  - PULMONARY OEDEMA [None]
  - RENAL FAILURE [None]
  - SYSTEMIC INFLAMMATORY RESPONSE SYNDROME [None]
  - VENTRICULAR TACHYCARDIA [None]
